FAERS Safety Report 9448680 (Version 2)
Quarter: 2013Q3

REPORT INFORMATION
  Report Type: Spontaneous
  Country: US (occurrence: US)
  Receive Date: 20130808
  Receipt Date: 20130822
  Transmission Date: 20140515
  Serious: Yes (Other)
  Sender: FDA-Public Use
  Company Number: US-BAYER-2013-094675

PATIENT
  Age: 67 Year
  Sex: Female
  Weight: 66 kg

DRUGS (2)
  1. BAYER ADVANCED ASPIRIN EXTRA STRENGTH [Suspect]
     Indication: ANALGESIC THERAPY
     Dosage: 2 DF, PRN
     Route: 048
     Dates: start: 2012, end: 2012
  2. BAYER ASPIRIN REGIMEN ADULT LOW STRENGTH [Concomitant]

REACTIONS (4)
  - Choking [Recovered/Resolved]
  - Foreign body [Recovered/Resolved]
  - Oesophageal discomfort [Recovered/Resolved]
  - Product solubility abnormal [Recovered/Resolved]
